FAERS Safety Report 19361970 (Version 2)
Quarter: 2021Q2

REPORT INFORMATION
  Report Type: Other
  Country: US (occurrence: US)
  Receive Date: 20210603
  Receipt Date: 20210626
  Transmission Date: 20210717
  Serious: No
  Sender: FDA-Public Use
  Company Number: US-NEUROCRINE BIOSCIENCES INC.-2021NBI02602

PATIENT

DRUGS (3)
  1. INGREZZA [Suspect]
     Active Substance: VALBENAZINE
     Dosage: 80 MILLIGRAM, QD
     Route: 048
     Dates: start: 20171207
  2. INGREZZA [Suspect]
     Active Substance: VALBENAZINE
     Dosage: 40 MILLIGRAM, QD
     Route: 048
     Dates: start: 20171129, end: 20171206
  3. INGREZZA [Suspect]
     Active Substance: VALBENAZINE
     Indication: TARDIVE DYSKINESIA
     Dosage: 40 MILLIGRAM EVERY OTHER DAY
     Route: 048
     Dates: end: 20210605

REACTIONS (6)
  - Muscular weakness [Unknown]
  - Inappropriate schedule of product administration [Unknown]
  - Gait disturbance [Recovering/Resolving]
  - Tremor [Unknown]
  - Parkinsonism [Unknown]
  - Balance disorder [Unknown]
